FAERS Safety Report 4386985-0 (Version None)
Quarter: 2004Q2

REPORT INFORMATION
  Report Type: 
  Country: None (occurrence: None)
  Receive Date: 20040625
  Receipt Date: 20040617
  Transmission Date: 20050107
  Serious: Yes (Life-Threatening, Hospitalization)
  Sender: FDA-Public Use
  Company Number: 2004214499JP

PATIENT
  Age: 65 Year
  Sex: Male
  Weight: 62.5 kg

DRUGS (6)
  1. CLINDAMYCIN HCL [Suspect]
     Indication: POSTOPERATIVE INFECTION
     Dosage: SEE IMAGE
     Route: 042
     Dates: start: 20040105, end: 20040109
  2. CLINDAMYCIN HCL [Suspect]
     Indication: POSTOPERATIVE INFECTION
     Dosage: SEE IMAGE
     Route: 042
     Dates: start: 20040111, end: 20040113
  3. DIFLUCAN [Suspect]
     Indication: POSTOPERATIVE INFECTION
     Dosage: 100 MG, BID, IV
     Route: 042
     Dates: start: 20040103, end: 20040105
  4. VOLTAREN [Suspect]
     Indication: PYREXIA
     Dosage: 50 MG, QD, ORAL
     Route: 048
     Dates: start: 20040111, end: 20040111
  5. BISOLVON [Concomitant]
  6. ATARAX [Concomitant]

REACTIONS (4)
  - BACTERIAL INFECTION [None]
  - HYPERSENSITIVITY [None]
  - TOXIC EPIDERMAL NECROLYSIS [None]
  - VIRAL INFECTION [None]
